FAERS Safety Report 6898181-3 (Version None)
Quarter: 2010Q3

REPORT INFORMATION
  Report Type: 
  Country: None (occurrence: None)
  Receive Date: 20100729
  Receipt Date: 20100721
  Transmission Date: 20110219
  Serious: Yes (Hospitalization)
  Sender: FDA-Public Use
  Company Number: 015355

PATIENT
  Sex: Female

DRUGS (2)
  1. CIMZIA [Suspect]
     Dosage: (DOSE; ON HOLD SUBCUTANEOUS)
     Route: 058
     Dates: start: 20090415
  2. PREDNISONE [Concomitant]

REACTIONS (1)
  - COLECTOMY [None]
